FAERS Safety Report 5069706-8 (Version None)
Quarter: 2006Q3

REPORT INFORMATION
  Report Type: 
  Country: None (occurrence: None)
  Receive Date: 20060731
  Receipt Date: 20060721
  Transmission Date: 20061208
  Serious: Yes (Other)
  Sender: FDA-Public Use
  Company Number: USA-2006-0024678

PATIENT
  Age: 14 Year
  Sex: Female

DRUGS (3)
  1. CEFDITOREN PIVOXIL (SIMILAR TO NDA 21-222) (CEFDITOREN PIVOXIL) [Suspect]
     Indication: CHALAZION
     Dosage: 100 MG, DAILY, ORAL
     Route: 048
  2. SELBEX (TEPRENONE) [Concomitant]
  3. LEVOFLOXACIN [Concomitant]

REACTIONS (2)
  - LOSS OF CONSCIOUSNESS [None]
  - PALPITATIONS [None]
